FAERS Safety Report 8152593-9 (Version None)
Quarter: 2012Q1

REPORT INFORMATION
  Report Type: 
  Country: None (occurrence: None)
  Receive Date: 20120221
  Receipt Date: 20120207
  Transmission Date: 20120608
  Serious: No
  Sender: FDA-Public Use
  Company Number: US-B.I. PHARMACEUTICALS,INC./RIDGEFIELD-2011-BP-05806BP

PATIENT
  Sex: Female

DRUGS (9)
  1. MULTI-VITAMINS [Concomitant]
     Indication: SUPPLEMENTATION THERAPY
  2. LOVAZA [Concomitant]
  3. DIOVAN HCT [Concomitant]
     Indication: HYPERTENSION
     Dosage: 20 MG
     Route: 048
  4. MAGNESIUM [Concomitant]
     Indication: SUPPLEMENTATION THERAPY
  5. PRADAXA [Suspect]
     Dosage: 300 MG
     Route: 048
     Dates: start: 20120114, end: 20120121
  6. DIOVAN [Concomitant]
     Indication: HYPERTENSION
  7. PRADAXA [Suspect]
     Indication: ATRIAL FIBRILLATION
     Dosage: 300 MG
     Route: 048
     Dates: start: 20110211, end: 20110215
  8. DILTIAZEM HCL [Concomitant]
     Indication: HYPERTENSION
     Dosage: 300 MG
     Route: 048
  9. NORMODYNE [Concomitant]
     Indication: HYPERTENSION
     Dosage: 200 MG
     Route: 048

REACTIONS (3)
  - ABDOMINAL PAIN UPPER [None]
  - INTERNATIONAL NORMALISED RATIO [None]
  - DIARRHOEA [None]
